FAERS Safety Report 8170265-1 (Version None)
Quarter: 2012Q1

REPORT INFORMATION
  Report Type: 
  Country: None (occurrence: None)
  Receive Date: 20120228
  Receipt Date: 20120221
  Transmission Date: 20120608
  Serious: Yes (Hospitalization)
  Sender: FDA-Public Use
  Company Number: US-BAYER-2012-017473

PATIENT
  Sex: Female

DRUGS (2)
  1. YAZ [Suspect]
     Dosage: UNK
     Dates: start: 20061201, end: 20071212
  2. YASMIN [Suspect]
     Dosage: UNK
     Dates: start: 20030601, end: 20061201

REACTIONS (5)
  - GENERAL PHYSICAL HEALTH DETERIORATION [None]
  - PAIN [None]
  - CEREBELLAR INFARCTION [None]
  - EMOTIONAL DISTRESS [None]
  - ANXIETY [None]
